FAERS Safety Report 8245590-6 (Version None)
Quarter: 2012Q1

REPORT INFORMATION
  Report Type: 
  Country: None (occurrence: None)
  Receive Date: 20120330
  Receipt Date: 20120319
  Transmission Date: 20120608
  Serious: Yes (Death)
  Sender: FDA-Public Use
  Company Number: FR-BRISTOL-MYERS SQUIBB COMPANY-16470262

PATIENT
  Age: 67 Year
  Sex: Female
  Weight: 56 kg

DRUGS (3)
  1. CISPLATIN [Suspect]
     Indication: HEAD AND NECK CANCER
     Dosage: LAST DOSE ON 9APR11
     Route: 042
     Dates: start: 20110225
  2. CETUXIMAB [Suspect]
     Indication: HEAD AND NECK CANCER
     Dosage: ALSO 250MG/M2 1 IN 1 WK:04MAR2011-STOP LAST INFUSION ON 9APR2011 LAST ADMIN:11MAR11
     Route: 041
     Dates: start: 20110225
  3. DOCETAXEL [Suspect]
     Indication: HEAD AND NECK CANCER
     Dosage: LAST DOSE ON 9APR11
     Route: 042
     Dates: start: 20110225

REACTIONS (1)
  - SEPTIC SHOCK [None]
